FAERS Safety Report 5026298-7 (Version None)
Quarter: 2006Q2

REPORT INFORMATION
  Report Type: 
  Country: None (occurrence: None)
  Receive Date: 20060426
  Receipt Date: 20060125
  Transmission Date: 20061013
  Serious: Yes (Other)
  Sender: FDA-Public Use
  Company Number: 2006013114

PATIENT
  Age: 75 Year
  Sex: Female
  Weight: 45.3597 kg

DRUGS (7)
  1. LYRICA [Suspect]
     Indication: SCIATICA
     Dosage: 150 MG (50 MG, 3 IN 1 D)
     Dates: start: 20060124
  2. LIPITOR [Concomitant]
  3. ATENOLOL [Concomitant]
  4. NIFEDIPINE [Concomitant]
  5. ARTHROTEC [Concomitant]
  6. ADVIL [Concomitant]
  7. SYNTHROID [Concomitant]

REACTIONS (3)
  - DIZZINESS [None]
  - DRUG INEFFECTIVE [None]
  - SOMNOLENCE [None]
